FAERS Safety Report 7245723-4 (Version None)
Quarter: 2011Q1

REPORT INFORMATION
  Report Type: 
  Country: None (occurrence: None)
  Receive Date: 20110126
  Receipt Date: 20110119
  Transmission Date: 20110831
  Serious: Yes (Other)
  Sender: FDA-Public Use
  Company Number: US-GENZYME-RENA-1001052

PATIENT

DRUGS (1)
  1. RENVELA [Suspect]
     Indication: HYPERPHOSPHATAEMIA
     Dosage: 0.8 G, TID
     Route: 048
     Dates: start: 20100801

REACTIONS (3)
  - WEIGHT DECREASED [None]
  - NAUSEA [None]
  - DECREASED APPETITE [None]
